FAERS Safety Report 8827546 (Version 2)
Quarter: 2013Q1

REPORT INFORMATION
  Report Type: Spontaneous
  Country: US (occurrence: US)
  Receive Date: 20121008
  Receipt Date: 20130125
  Transmission Date: 20140127
  Serious: Yes (Hospitalization)
  Sender: FDA-Public Use
  Company Number: US-BAYER-2012-102355

PATIENT
  Age: 18 Year
  Sex: Female
  Weight: 75.74 kg

DRUGS (10)
  1. YAZ [Suspect]
     Indication: CONTRACEPTION
     Dosage: UNK
     Dates: start: 200903, end: 201004
  2. ORTHO MICRONOR-28 [Concomitant]
     Dosage: UNK
     Dates: start: 200911, end: 200912
  3. OCELLA [Suspect]
     Indication: CONTRACEPTION
     Dosage: UNK
     Dates: start: 2010, end: 2010
  4. EXCEDRIN [Concomitant]
     Dosage: 250MG-65MG 2 TABLETS ONCE DAILY
  5. SEPTRA DS [Concomitant]
     Indication: CYSTITIS
     Dosage: 800 MG-160 MG 2 TIMES DAILY, 10 DAYS
     Route: 048
  6. SULFAMETHOXAZOLE-TMP (TRIMETHOPRIM) DS [Concomitant]
  7. GARDASIL [Concomitant]
     Dosage: 0.5 ML, LEFT DELTOID
  8. VICODIN [Concomitant]
     Dosage: 5/500 MG, [HALF] -1 TABLET BID
  9. HYDROCODONE W/ACETAMINOPHEN [Concomitant]
     Dosage: 5/500MG
  10. TYLENOL 3 [Concomitant]

REACTIONS (8)
  - Pelvic venous thrombosis [None]
  - Pelvic venous thrombosis [None]
  - Emotional distress [None]
  - Pain [None]
  - Injury [None]
  - General physical health deterioration [None]
  - Anxiety [None]
  - Pain [None]
